FAERS Safety Report 23674214 (Version 1)
Quarter: 2024Q1

REPORT INFORMATION
  Report Type: Spontaneous
  Country: CA (occurrence: CA)
  Receive Date: 20240326
  Receipt Date: 20240326
  Transmission Date: 20240410
  Serious: Yes (Other)
  Sender: FDA-Public Use
  Company Number: CA-ABBVIE-5691769

PATIENT
  Age: 65 Year
  Sex: Male
  Weight: 29 kg

DRUGS (3)
  1. HUMIRA [Suspect]
     Active Substance: ADALIMUMAB
     Indication: Product used for unknown indication
     Route: 058
  2. HYRIMOZ [Suspect]
     Active Substance: ADALIMUMAB-ADAZ
     Indication: Crohn^s disease
     Route: 058
  3. PERINDOPRIL ARGININE [Concomitant]
     Active Substance: PERINDOPRIL ARGININE
     Indication: Product used for unknown indication
     Route: 048

REACTIONS (11)
  - Arthritis [Recovering/Resolving]
  - Furuncle [Recovering/Resolving]
  - Abscess [Recovering/Resolving]
  - Weight increased [Recovering/Resolving]
  - Frequent bowel movements [Recovering/Resolving]
  - Muscle spasms [Recovering/Resolving]
  - Off label use [Recovering/Resolving]
  - Increased appetite [Recovering/Resolving]
  - Haematochezia [Recovering/Resolving]
  - Therapeutic product effect incomplete [Recovering/Resolving]
  - Inappropriate schedule of product administration [Recovering/Resolving]
